FAERS Safety Report 11258019 (Version 1)
Quarter: 2015Q3

REPORT INFORMATION
  Report Type: Spontaneous
  Country: US (occurrence: None)
  Receive Date: 20150708
  Receipt Date: 20150708
  Transmission Date: 20151125
  Serious: Yes (Hospitalization, Other)
  Sender: FDA-Public Use
  Company Number: 2015ST000127

PATIENT
  Sex: Male

DRUGS (1)
  1. RUCONEST [Suspect]
     Active Substance: HUMAN C1-ESTERASE INHIBITOR
     Indication: HEREDITARY ANGIOEDEMA
     Dates: start: 20150603

REACTIONS (3)
  - Pain [None]
  - Pneumonia [None]
  - Drug ineffective [None]

NARRATIVE: CASE EVENT DATE: 2015
